FAERS Safety Report 23169114 (Version 8)
Quarter: 2024Q2

REPORT INFORMATION
  Report Type: Report from Study
  Country: IT (occurrence: IT)
  Receive Date: 20231110
  Receipt Date: 20240516
  Transmission Date: 20240717
  Serious: Yes (Hospitalization)
  Sender: FDA-Public Use
  Company Number: IT-SA-SAC20231102000864

PATIENT
  Age: 73 Year
  Sex: Male
  Weight: 75 kg

DRUGS (47)
  1. ISATUXIMAB [Suspect]
     Active Substance: ISATUXIMAB
     Indication: Plasma cell myeloma refractory
     Dosage: 10 MG/KG, QW
     Dates: start: 20220620, end: 20220703
  2. ISATUXIMAB [Suspect]
     Active Substance: ISATUXIMAB
     Dosage: 10 MG/KG, QW
     Dates: start: 20220711, end: 20220717
  3. ISATUXIMAB [Suspect]
     Active Substance: ISATUXIMAB
     Dosage: 10 MG/KG, BIW
     Dates: start: 20220801, end: 20220807
  4. ISATUXIMAB [Suspect]
     Active Substance: ISATUXIMAB
     Dosage: 10 MG/KG, BIW
     Dates: start: 20220816, end: 20220821
  5. ISATUXIMAB [Suspect]
     Active Substance: ISATUXIMAB
     Dosage: 10 MG/KG, BIW
     Dates: start: 20220829, end: 20220922
  6. ISATUXIMAB [Suspect]
     Active Substance: ISATUXIMAB
     Dosage: 10 MG/KG, BIW
     Dates: start: 20220923, end: 20221020
  7. ISATUXIMAB [Suspect]
     Active Substance: ISATUXIMAB
     Dosage: 10 MG/KG, BIW
     Dates: start: 20221021, end: 20221118
  8. ISATUXIMAB [Suspect]
     Active Substance: ISATUXIMAB
     Dosage: 10 MG/KG, BIW
     Dates: start: 20221216, end: 20230122
  9. ISATUXIMAB [Suspect]
     Active Substance: ISATUXIMAB
     Dosage: 10 MG/KG, BIW
     Dates: start: 20230123, end: 20230219
  10. ISATUXIMAB [Suspect]
     Active Substance: ISATUXIMAB
     Dosage: 10 MG/KG, BIW
     Dates: start: 20230220, end: 20230319
  11. ISATUXIMAB [Suspect]
     Active Substance: ISATUXIMAB
     Dosage: 10 MG/KG, BIW
     Dates: start: 20230320, end: 20230416
  12. ISATUXIMAB [Suspect]
     Active Substance: ISATUXIMAB
     Dosage: 10 MG/KG, 1X
     Dates: start: 20230417, end: 20230528
  13. ISATUXIMAB [Suspect]
     Active Substance: ISATUXIMAB
     Dosage: 10 MG/KG, BIW
     Dates: start: 20230529, end: 20230625
  14. ISATUXIMAB [Suspect]
     Active Substance: ISATUXIMAB
     Dosage: 10 MG/KG, BIW
     Dates: start: 20230625, end: 20230723
  15. DEXAMETHASONE [Suspect]
     Active Substance: DEXAMETHASONE
     Indication: Plasma cell myeloma refractory
     Dosage: 40 MG, QW
     Dates: start: 20220621, end: 20220703
  16. DEXAMETHASONE [Suspect]
     Active Substance: DEXAMETHASONE
     Dosage: 40 MG, QW
     Dates: start: 20220711, end: 20220717
  17. DEXAMETHASONE [Suspect]
     Active Substance: DEXAMETHASONE
     Dosage: 40 MG, QW
     Dates: start: 20220801, end: 20220807
  18. DEXAMETHASONE [Suspect]
     Active Substance: DEXAMETHASONE
     Dosage: 40 MG, QW
     Dates: start: 20220816, end: 20220821
  19. DEXAMETHASONE [Suspect]
     Active Substance: DEXAMETHASONE
     Dosage: 40 MG, QW
     Dates: start: 20220829, end: 20220925
  20. DEXAMETHASONE [Suspect]
     Active Substance: DEXAMETHASONE
     Dosage: 70 MG, BIW
     Dates: start: 20220923, end: 20221020
  21. DEXAMETHASONE [Suspect]
     Active Substance: DEXAMETHASONE
     Dosage: 70 MG, BIW
     Dates: start: 20221021, end: 20221118
  22. DEXAMETHASONE [Suspect]
     Active Substance: DEXAMETHASONE
     Dosage: 70 MG, BIW
     Dates: start: 20221216, end: 20230122
  23. DEXAMETHASONE [Suspect]
     Active Substance: DEXAMETHASONE
     Dosage: 40 MG, BIW
     Dates: start: 20230123, end: 20230219
  24. DEXAMETHASONE [Suspect]
     Active Substance: DEXAMETHASONE
     Dosage: 50 MG, BIW
     Dates: start: 20230220, end: 20230319
  25. DEXAMETHASONE [Suspect]
     Active Substance: DEXAMETHASONE
     Dosage: 50 MG, QW
     Dates: start: 20230320, end: 20230416
  26. DEXAMETHASONE [Suspect]
     Active Substance: DEXAMETHASONE
     Dosage: 20 MG, 1X
     Dates: start: 20230314, end: 20230528
  27. DEXAMETHASONE [Suspect]
     Active Substance: DEXAMETHASONE
     Dosage: 50 MG, BIW
     Dates: start: 20230529, end: 20230625
  28. DEXAMETHASONE [Suspect]
     Active Substance: DEXAMETHASONE
     Dosage: 50 MG, BIW
     Dates: start: 20230626, end: 20230723
  29. CARFILZOMIB [Suspect]
     Active Substance: CARFILZOMIB
     Indication: Plasma cell myeloma refractory
     Dosage: 20 MG/M2, BIW
     Dates: start: 20220620, end: 20220626
  30. CARFILZOMIB [Suspect]
     Active Substance: CARFILZOMIB
     Dosage: 56 MG/M2, BIW
     Dates: start: 20220627, end: 20220703
  31. CARFILZOMIB [Suspect]
     Active Substance: CARFILZOMIB
     Dosage: 56 MG/M2, BIW
     Dates: start: 20220801, end: 20220807
  32. CARFILZOMIB [Suspect]
     Active Substance: CARFILZOMIB
     Dosage: 56 MG/M2, BIW
     Dates: start: 20220816, end: 20220821
  33. CARFILZOMIB [Suspect]
     Active Substance: CARFILZOMIB
     Dosage: 56 MG/M2, BIW
     Dates: start: 20220829, end: 20220905
  34. CARFILZOMIB [Suspect]
     Active Substance: CARFILZOMIB
     Dosage: 56 MG/M2, BIW
     Dates: start: 20220912, end: 20220918
  35. CARFILZOMIB [Suspect]
     Active Substance: CARFILZOMIB
     Dosage: 56 MG/M2, 5 TIMES PER CYCLE
     Dates: start: 20220923, end: 20221020
  36. CARFILZOMIB [Suspect]
     Active Substance: CARFILZOMIB
     Dosage: 56 MG/M2, 5 TIMES PER CYCLE
     Dates: start: 20221216, end: 20230122
  37. CARFILZOMIB [Suspect]
     Active Substance: CARFILZOMIB
     Dosage: 56 MG/M2, BIW
     Dates: start: 20230123, end: 20230219
  38. CARFILZOMIB [Suspect]
     Active Substance: CARFILZOMIB
     Dosage: 56 MG/M2, 3X/ CYCLE
     Dates: start: 20230220, end: 20230319
  39. CARFILZOMIB [Suspect]
     Active Substance: CARFILZOMIB
     Dosage: 56 MG/M2, 3X/CYCLE
     Dates: start: 20230320, end: 20230416
  40. CARFILZOMIB [Suspect]
     Active Substance: CARFILZOMIB
     Dosage: 56 MG/M2, BIW
     Dates: start: 20230417, end: 20230528
  41. CARFILZOMIB [Suspect]
     Active Substance: CARFILZOMIB
     Dosage: 56 MG/M2, 3X/ CYCLE
     Dates: start: 20230529, end: 20230625
  42. CARFILZOMIB [Suspect]
     Active Substance: CARFILZOMIB
     Dosage: 56 MG/M2, 3X/ CYCLE
     Dates: start: 20230626, end: 20230723
  43. VALSARTAN [Concomitant]
     Active Substance: VALSARTAN
     Indication: Hypertension
     Dosage: UNK
     Dates: start: 2018
  44. VALACYCLOVIR HYDROCHLORIDE [Concomitant]
     Active Substance: VALACYCLOVIR HYDROCHLORIDE
     Indication: Antiviral prophylaxis
     Dosage: UNK
     Dates: start: 20220620
  45. PANTOPRAZOLE [Concomitant]
     Active Substance: PANTOPRAZOLE
     Indication: Prophylaxis
     Dosage: UNK
     Dates: start: 2018
  46. LAMIVUDINE [Concomitant]
     Active Substance: LAMIVUDINE
     Indication: Hepatitis B
     Dosage: UNK
     Dates: start: 20230417
  47. CHLORPHENIRAMINE MALEATE [Concomitant]
     Active Substance: CHLORPHENIRAMINE MALEATE
     Indication: Premedication
     Dosage: UNK
     Dates: start: 20220617

REACTIONS (5)
  - Gastroenteritis salmonella [Recovered/Resolved]
  - Diarrhoea [Recovered/Resolved]
  - Venous thrombosis [Recovered/Resolved]
  - Gastroenteritis [Recovered/Resolved]
  - COVID-19 [Recovered/Resolved]

NARRATIVE: CASE EVENT DATE: 20230425
